FAERS Safety Report 21836500 (Version 1)
Quarter: 2023Q1

REPORT INFORMATION
  Report Type: Spontaneous
  Country: DE (occurrence: DE)
  Receive Date: 20230109
  Receipt Date: 20230109
  Transmission Date: 20230417
  Serious: No
  Sender: FDA-Public Use
  Company Number: None

PATIENT
  Age: 35 Year
  Sex: Female
  Weight: 68 kg

DRUGS (2)
  1. IBUPROFEN [Suspect]
     Active Substance: IBUPROFEN
     Indication: Oropharyngeal pain
     Dosage: 400 MILLIGRAM, BID ( EVERY 12 HOUR) (OTHER/UNSPECIFIED)
     Route: 048
     Dates: start: 20220908, end: 20220909
  2. IBUPROFEN [Suspect]
     Active Substance: IBUPROFEN
     Indication: Viral infection

REACTIONS (3)
  - Skin burning sensation [Unknown]
  - Pruritus [Recovered/Resolved]
  - Skin swelling [Recovered/Resolved]

NARRATIVE: CASE EVENT DATE: 20220901
